FAERS Safety Report 9071874 (Version 1)
Quarter: 2013Q1

REPORT INFORMATION
  Report Type: Spontaneous
  Country: US (occurrence: US)
  Receive Date: 20130129
  Receipt Date: 20130129
  Transmission Date: 20140127
  Serious: Yes (Death)
  Sender: FDA-Public Use
  Company Number: PHHY2013US007290

PATIENT
  Age: 22 Year
  Sex: Male

DRUGS (8)
  1. METOPROLOL [Suspect]
  2. ETHANOL [Suspect]
  3. DIAZEPAM [Suspect]
  4. TRAZODONE [Suspect]
  5. FENTANYL [Suspect]
  6. ZOLPIDEM [Suspect]
  7. QUETIAPINE [Suspect]
  8. FLUOXETINE [Suspect]

REACTIONS (1)
  - Drug abuse [Fatal]
